FAERS Safety Report 9403468 (Version 2)
Quarter: 2013Q3

REPORT INFORMATION
  Report Type: Report from Study
  Country: US (occurrence: US)
  Receive Date: 20130716
  Receipt Date: 20130731
  Transmission Date: 20140515
  Serious: Yes (Hospitalization)
  Sender: FDA-Public Use
  Company Number: US-ABBOTT-13P-163-1117653-00

PATIENT
  Age: 56 Year
  Sex: Male

DRUGS (9)
  1. HUMIRA [Suspect]
     Indication: ECZEMA
     Dates: start: 201302
  2. HUMIRA [Suspect]
     Indication: PSORIASIS
     Dates: start: 201210
  3. CIPRO HEXIDINE [Concomitant]
     Indication: PRURITUS
  4. DOXEPIN [Concomitant]
     Indication: PRURITUS
  5. HYDROXYZINE [Concomitant]
     Indication: PRURITUS
  6. ADVAIR [Concomitant]
     Indication: ASTHMA
  7. ALBUTEROL [Concomitant]
     Indication: ASTHMA
     Route: 055
  8. HYDROCHLOROTHIAZIDE [Concomitant]
     Indication: BLOOD PRESSURE
  9. VYTORIN [Concomitant]
     Indication: BLOOD CHOLESTEROL

REACTIONS (2)
  - Arthralgia [Recovering/Resolving]
  - Off label use [Not Recovered/Not Resolved]
